FAERS Safety Report 14721186 (Version 2)
Quarter: 2018Q3

REPORT INFORMATION
  Report Type: Spontaneous
  Country: US (occurrence: US)
  Receive Date: 20180405
  Receipt Date: 20180709
  Transmission Date: 20181010
  Serious: Yes (Disabling, Other)
  Sender: FDA-Public Use
  Company Number: US-REGENERON PHARMACEUTICALS, INC.-2018-13289

PATIENT

DRUGS (2)
  1. EYLEA [Suspect]
     Active Substance: AFLIBERCEPT
     Indication: NEOVASCULAR AGE-RELATED MACULAR DEGENERATION
     Dosage: 2 MG, 4 MONTHS, LEFT EYE
     Route: 031
     Dates: start: 20131013
  2. EYLEA [Suspect]
     Active Substance: AFLIBERCEPT
     Dosage: 2 MG, 4 MONTHS, LEFT EYE, LAST DOSE
     Route: 031
     Dates: start: 20171129, end: 20171129

REACTIONS (4)
  - Blindness unilateral [Not Recovered/Not Resolved]
  - Pseudoendophthalmitis [Recovered/Resolved]
  - Iritis [Recovered/Resolved]
  - Eye pain [Recovered/Resolved]

NARRATIVE: CASE EVENT DATE: 20171129
